FAERS Safety Report 18472710 (Version 2)
Quarter: 2021Q3

REPORT INFORMATION
  Report Type: Spontaneous
  Country: US (occurrence: US)
  Receive Date: 20201106
  Receipt Date: 20210729
  Transmission Date: 20211014
  Serious: Yes (Hospitalization, Other)
  Sender: FDA-Public Use
  Company Number: US-PFIZER INC-2020423928

PATIENT
  Age: 75 Year
  Sex: Female

DRUGS (2)
  1. VANCOMYCIN HCL [Suspect]
     Active Substance: VANCOMYCIN HYDROCHLORIDE
     Indication: PNEUMONIA STAPHYLOCOCCAL
     Dosage: UNK
     Route: 048
  2. METRONIDAZOLE [METRONIDAZOLE SODIUM] [Concomitant]
     Dosage: UNK
     Route: 042

REACTIONS (4)
  - Haemodynamic instability [Recovering/Resolving]
  - Clostridium difficile infection [Recovering/Resolving]
  - Leukocytosis [Recovering/Resolving]
  - Pseudomembranous colitis [Recovering/Resolving]
